FAERS Safety Report 25949076 (Version 1)
Quarter: 2025Q4

REPORT INFORMATION
  Report Type: Spontaneous
  Country: US (occurrence: None)
  Receive Date: 20251022
  Receipt Date: 20251022
  Transmission Date: 20260117
  Serious: No
  Sender: FDA-CTU
  Company Number: None

PATIENT

DRUGS (1)
  1. GABAPENTIN [Suspect]
     Active Substance: GABAPENTIN

REACTIONS (8)
  - Multiple sclerosis relapse [None]
  - Hypoaesthesia [None]
  - Pain [None]
  - Neuropathy peripheral [None]
  - Fatigue [None]
  - Multiple sclerosis [None]
  - Dysaesthesia [None]
  - Lethargy [None]
